FAERS Safety Report 25852043 (Version 1)
Quarter: 2025Q3

REPORT INFORMATION
  Report Type: Spontaneous
  Country: CA (occurrence: CA)
  Receive Date: 20250926
  Receipt Date: 20250926
  Transmission Date: 20251021
  Serious: Yes (Death)
  Sender: ORGANON
  Company Number: CA-ORGANON-O2509CAN001792

PATIENT
  Age: 68 Year
  Sex: Female

DRUGS (4)
  1. REMERON [Interacting]
     Active Substance: MIRTAZAPINE
     Route: 065
  2. ARIPIPRAZOLE [Interacting]
     Active Substance: ARIPIPRAZOLE
     Route: 065
  3. ALCOHOL [Interacting]
     Active Substance: ALCOHOL
     Route: 065
  4. TRAZODONE [Interacting]
     Active Substance: TRAZODONE HYDROCHLORIDE
     Route: 065

REACTIONS (9)
  - Accidental death [Fatal]
  - Alcohol interaction [Fatal]
  - Blood alcohol increased [Fatal]
  - Cardiac death [Fatal]
  - Cardiac failure [Fatal]
  - Drug interaction [Fatal]
  - Drug-disease interaction [Fatal]
  - Loss of consciousness [Fatal]
  - Ventricular arrhythmia [Fatal]
